FAERS Safety Report 14634681 (Version 13)
Quarter: 2024Q4

REPORT INFORMATION
  Report Type: Spontaneous
  Country: US (occurrence: US)
  Receive Date: 20180314
  Receipt Date: 20241024
  Transmission Date: 20250114
  Serious: No
  Sender: PFIZER
  Company Number: US-PFIZER INC-2018103365

PATIENT
  Age: 63 Year
  Sex: Female
  Weight: 104.31 kg

DRUGS (4)
  1. SOMAVERT [Suspect]
     Active Substance: PEGVISOMANT
     Indication: Acromegaly
     Dosage: 25 MG, DAILY
     Dates: start: 20080911
  2. SOMAVERT [Suspect]
     Active Substance: PEGVISOMANT
     Indication: Gigantism
     Dosage: 25 MG, DAILY (UNDER THE SKIN)
  3. SOMAVERT [Suspect]
     Active Substance: PEGVISOMANT
     Dosage: 30 MG, ALTERNATE DAY (EVERY OTHER DAY OR EVERY THIRD OR FOURTH DAY)
  4. SOMAVERT [Suspect]
     Active Substance: PEGVISOMANT
     Dosage: 30 MG, 1X/DAY (UNDER THE SKIN DAILY)
     Route: 058

REACTIONS (4)
  - Nasopharyngitis [Unknown]
  - Headache [Unknown]
  - Intentional product misuse [Unknown]
  - Product dose omission issue [Unknown]
